FAERS Safety Report 7685491-5 (Version None)
Quarter: 2011Q3

REPORT INFORMATION
  Report Type: 
  Country: None (occurrence: None)
  Receive Date: 20110812
  Receipt Date: 20110812
  Transmission Date: 20111222
  Serious: Yes (Life-Threatening, Hospitalization, Disabling)
  Sender: FDA-Public Use
  Company Number: None

PATIENT
  Age: 60 Year
  Sex: Male
  Weight: 74.8435 kg

DRUGS (1)
  1. TRIAD ALCOHOL SWABS (PREP PAD) 70% I/U TRIAD DISPOSABLES H+P INDUSTRIE [Suspect]
     Indication: POSTOPERATIVE CARE
     Dosage: 1 PAD, MED X 3 4 X/DAY
     Dates: start: 20110113, end: 20110121

REACTIONS (2)
  - PRODUCT QUALITY ISSUE [None]
  - INFECTION [None]
